FAERS Safety Report 13214233 (Version 1)
Quarter: 2017Q1

REPORT INFORMATION
  Report Type: Spontaneous
  Country: US (occurrence: US)
  Receive Date: 20170209
  Receipt Date: 20170209
  Transmission Date: 20170428
  Serious: Yes (Other)
  Sender: FDA-Public Use
  Company Number: US-ALLERGAN-1668764US

PATIENT
  Sex: Male

DRUGS (1)
  1. BOTOX [Suspect]
     Active Substance: ONABOTULINUMTOXINA
     Indication: MUSCLE SPASTICITY
     Dosage: 800 UNITS, SINGLE
     Route: 030

REACTIONS (4)
  - Off label use [Unknown]
  - Haematemesis [Unknown]
  - Peptic ulcer [Unknown]
  - Pneumonia aspiration [Unknown]
